FAERS Safety Report 7592159-2 (Version None)
Quarter: 2011Q3

REPORT INFORMATION
  Report Type: 
  Country: None (occurrence: None)
  Receive Date: 20110705
  Receipt Date: 20110705
  Transmission Date: 20111222
  Serious: Yes (Other)
  Sender: FDA-Public Use
  Company Number: None

PATIENT
  Age: 82 Year
  Sex: Female
  Weight: 64.4108 kg

DRUGS (2)
  1. PRADAXA [Suspect]
     Indication: CARDIAC DISORDER
     Dosage: 1 2 X DAY
     Dates: start: 20110606, end: 20110701
  2. PRADAXA [Suspect]
     Indication: MITRAL VALVE DISEASE
     Dosage: 1 2 X DAY
     Dates: start: 20110606, end: 20110701

REACTIONS (9)
  - EYE IRRITATION [None]
  - ARTHRALGIA [None]
  - ASTHENOPIA [None]
  - REFUSAL OF TREATMENT BY PATIENT [None]
  - MUSCLE SPASMS [None]
  - FATIGUE [None]
  - DIZZINESS [None]
  - PAIN [None]
  - ASTHENIA [None]
